FAERS Safety Report 4659791-7 (Version None)
Quarter: 2005Q2

REPORT INFORMATION
  Report Type: 
  Country: None (occurrence: None)
  Receive Date: 20050510
  Receipt Date: 20050426
  Transmission Date: 20051028
  Serious: Yes (Other)
  Sender: FDA-Public Use
  Company Number: 2005BI007458

PATIENT
  Age: 55 Year
  Sex: Female
  Weight: 58.514 kg

DRUGS (4)
  1. AVONEX [Suspect]
     Indication: MULTIPLE SCLEROSIS
     Dosage: 15 UG QW IM; 22.5 UG QG IM; 30 UG QW IM
     Route: 030
     Dates: end: 20030101
  2. AVONEX [Suspect]
     Indication: MULTIPLE SCLEROSIS
     Dosage: 30 UG QW IM; 7.5 UG QW IM; 15 UG QW IM
     Route: 030
     Dates: start: 20040801, end: 20040801
  3. AVONEX [Suspect]
     Indication: MULTIPLE SCLEROSIS
     Dosage: 30 UG QW IM; 7.5 UG QW IM; 15 UG QW IM
     Route: 030
     Dates: start: 20050318, end: 20050325
  4. AVONEX [Suspect]
     Indication: MULTIPLE SCLEROSIS
     Dosage: 30 UG QW IM; 7.5 UG QW IM; 15 UG QW IM
     Route: 030
     Dates: start: 20050401, end: 20050401

REACTIONS (18)
  - ASTHENIA [None]
  - BRUXISM [None]
  - BURNING SENSATION [None]
  - DYSSTASIA [None]
  - FALL [None]
  - FEELING ABNORMAL [None]
  - FOOT DEFORMITY [None]
  - HEART RATE INCREASED [None]
  - HEART SOUNDS ABNORMAL [None]
  - HYPOAESTHESIA [None]
  - INCONTINENCE [None]
  - INFLUENZA LIKE ILLNESS [None]
  - MIGRAINE [None]
  - MOVEMENT DISORDER [None]
  - MUSCULOSKELETAL STIFFNESS [None]
  - PAIN [None]
  - POST PROCEDURAL COMPLICATION [None]
  - THROAT TIGHTNESS [None]
